FAERS Safety Report 15383814 (Version 1)
Quarter: 2018Q3

REPORT INFORMATION
  Report Type: Spontaneous
  Country: US (occurrence: US)
  Receive Date: 20180906
  Receipt Date: 20180906
  Transmission Date: 20181010
  Serious: No
  Sender: FDA-Public Use
  Company Number: None

PATIENT
  Age: 64 Year
  Sex: Male
  Weight: 154.68 kg

DRUGS (1)
  1. OTEZLA [Suspect]
     Active Substance: APREMILAST
     Indication: PSORIASIS
     Dosage: TAKE 1 TABLET BY MOUTH TWICE DAILY AS DIRECTED
     Route: 048
     Dates: start: 201710

REACTIONS (3)
  - Musculoskeletal pain [None]
  - Diarrhoea [None]
  - Fall [None]
